FAERS Safety Report 4678925-1 (Version None)
Quarter: 2005Q2

REPORT INFORMATION
  Report Type: 
  Country: None (occurrence: None)
  Receive Date: 20050531
  Receipt Date: 20050516
  Transmission Date: 20051028
  Serious: Yes (Death)
  Sender: FDA-Public Use
  Company Number: 2005076570

PATIENT

DRUGS (20)
  1. CELEBREX [Suspect]
     Indication: ILL-DEFINED DISORDER
  2. ACCUPRIL [Concomitant]
  3. ARICEPT [Concomitant]
  4. CARDURA [Concomitant]
  5. DIFLUCAN [Concomitant]
  6. ESTROSTEP (ETHINYLESTRADIOL, NORTHISTERONE ACETATE) [Concomitant]
  7. FELDENE [Concomitant]
  8. GEODON [Concomitant]
  9. GLUCOTROL XL [Concomitant]
  10. LIPITOR [Concomitant]
  11. LOESTRIN (ETHINYL ESTRADIOL, NORETHINDRONE ACETATE) [Concomitant]
  12. NEURONTIN [Concomitant]
  13. NORVASC [Concomitant]
  14. PROCARDIA [Concomitant]
  15. TIKOSYN [Concomitant]
  16. TROVAN [Concomitant]
  17. VIAGRA [Concomitant]
  18. ZYRTEC [Concomitant]
  19. ZITHROXMAX (AZITHROMYCIN) [Concomitant]
  20. FEMHRT [Concomitant]

REACTIONS (1)
  - DEATH [None]
